FAERS Safety Report 9693047 (Version 1)
Quarter: 2013Q4

REPORT INFORMATION
  Report Type: Spontaneous
  Country: IT (occurrence: IT)
  Receive Date: 20131118
  Receipt Date: 20131118
  Transmission Date: 20140711
  Serious: Yes (Hospitalization)
  Sender: FDA-Public Use
  Company Number: IT-BAYER-2013-137222

PATIENT
  Age: 83 Year
  Sex: Male

DRUGS (1)
  1. CARDIOASPIRIN [Suspect]
     Indication: PHLEBECTOMY
     Dosage: 100 MG, QD
     Route: 048
     Dates: start: 20130101, end: 20131023

REACTIONS (6)
  - Rectal haemorrhage [Recovered/Resolved]
  - Proctitis [Recovered/Resolved]
  - Diverticulum intestinal [Recovered/Resolved]
  - Melanosis coli [Recovered/Resolved]
  - Intra-abdominal haemangioma [Recovered/Resolved]
  - Duodenal ulcer haemorrhage [Recovered/Resolved]
